FAERS Safety Report 5078525-8 (Version None)
Quarter: 2006Q3

REPORT INFORMATION
  Report Type: 
  Country: None (occurrence: None)
  Receive Date: 20060811
  Receipt Date: 20050803
  Transmission Date: 20061208
  Serious: Yes (Hospitalization, Other)
  Sender: FDA-Public Use
  Company Number: FR-ABBOTT-05P-056-0307745-00

PATIENT
  Age: 60 Year
  Sex: Female

DRUGS (26)
  1. HUMIRA [Suspect]
     Indication: RHEUMATOID ARTHRITIS
     Route: 058
     Dates: start: 20030717, end: 20050101
  2. PREDNISONE [Concomitant]
     Indication: RHEUMATOID ARTHRITIS
     Route: 048
  3. PREDNISONE [Concomitant]
     Route: 048
     Dates: end: 20020329
  4. PREDNISONE [Concomitant]
     Route: 048
     Dates: end: 20020501
  5. PREDNISONE [Concomitant]
     Route: 048
     Dates: start: 20020501
  6. PREDNISONE [Concomitant]
     Route: 048
     Dates: start: 20020601, end: 20020701
  7. PREDNISONE [Concomitant]
     Route: 048
     Dates: start: 20020701
  8. PREDNISONE [Concomitant]
     Route: 048
     Dates: start: 20020701
  9. PAROXETINE HCL [Concomitant]
     Indication: RHEUMATOID ARTHRITIS
     Route: 048
     Dates: start: 20040624
  10. NAPROXENE [Concomitant]
     Indication: RHEUMATOID ARTHRITIS
     Route: 048
     Dates: start: 20030617
  11. SULFASALAZINE [Concomitant]
     Indication: DRUG USE FOR UNKNOWN INDICATION
     Route: 065
     Dates: end: 20020501
  12. METHOTREXATE [Concomitant]
     Indication: RHEUMATOID ARTHRITIS
     Dates: start: 20020502, end: 20020515
  13. METHOTREXATE [Concomitant]
     Dates: start: 20020515
  14. METHOTREXATE [Concomitant]
     Dates: start: 20020612, end: 20030617
  15. FOLIC ACID [Concomitant]
     Indication: DRUG USE FOR UNKNOWN INDICATION
     Dosage: NOT REPORTED
     Dates: start: 20020612
  16. CELECOXIB [Concomitant]
     Indication: DRUG USE FOR UNKNOWN INDICATION
     Dates: start: 20020612
  17. ACETAMINOPHEN W/ PROPOXYPHENE HCL [Concomitant]
     Indication: DRUG USE FOR UNKNOWN INDICATION
     Dates: start: 20020612
  18. CALCIUM WITH VITAMIN D [Concomitant]
     Indication: DRUG USE FOR UNKNOWN INDICATION
     Dosage: NOT REPORTED
     Dates: start: 20020612
  19. HYDROXYCHLOROQUINE SULFATE [Concomitant]
     Indication: RHEUMATOID ARTHRITIS
     Dosage: NOT REPORTED
     Dates: start: 20030601
  20. RIFINAH [Concomitant]
     Indication: DRUG USE FOR UNKNOWN INDICATION
     Dosage: NOT REPORTED
     Dates: start: 20030601
  21. PREDNISOLONE [Concomitant]
     Indication: DRUG USE FOR UNKNOWN INDICATION
     Dates: start: 20030601
  22. POTASSIUM CHLORIDE [Concomitant]
     Indication: DRUG USE FOR UNKNOWN INDICATION
     Dosage: NOT REPORTED
     Route: 048
     Dates: start: 20030601
  23. POTASSIUM CHLORIDE [Concomitant]
     Route: 048
  24. OMEPRAZOLE [Concomitant]
     Indication: DRUG USE FOR UNKNOWN INDICATION
     Route: 048
  25. TAMOXIFEN CITRATE [Concomitant]
     Indication: DRUG USE FOR UNKNOWN INDICATION
     Route: 048
  26. CALCIUM GLUCONATE [Concomitant]
     Indication: DRUG USE FOR UNKNOWN INDICATION
     Route: 048

REACTIONS (6)
  - BREAST CANCER [None]
  - BREAST CANCER FEMALE [None]
  - CERVICAL DYSPLASIA [None]
  - INFECTED SEBACEOUS CYST [None]
  - MACROCYTOSIS [None]
  - RHEUMATOID ARTHRITIS [None]
